FAERS Safety Report 4940598-8 (Version None)
Quarter: 2006Q1

REPORT INFORMATION
  Report Type: 
  Country: None (occurrence: None)
  Receive Date: 20060201
  Receipt Date: 20051128
  Transmission Date: 20060701
  Serious: No
  Sender: FDA-Public Use
  Company Number: 2005PV004924

PATIENT
  Age: 52 Year
  Sex: Female
  Weight: 140.6151 kg

DRUGS (4)
  1. BYETTA [Suspect]
     Indication: WEIGHT DECREASED
     Dosage: 10 MCG; BID; SC;  5 MCG; BID; SC
     Route: 058
     Dates: start: 20051021, end: 20051114
  2. BYETTA [Suspect]
     Indication: WEIGHT DECREASED
     Dosage: 10 MCG; BID; SC;  5 MCG; BID; SC
     Route: 058
     Dates: start: 20051114
  3. METFORMIN [Concomitant]
  4. LANTUS [Concomitant]

REACTIONS (6)
  - FEELING ABNORMAL [None]
  - HEADACHE [None]
  - INSOMNIA [None]
  - NAUSEA [None]
  - SINUS CONGESTION [None]
  - SINUS DISORDER [None]
